FAERS Safety Report 10068865 (Version 2)
Quarter: 2014Q2

REPORT INFORMATION
  Report Type: Spontaneous
  Country: US (occurrence: US)
  Receive Date: 20140409
  Receipt Date: 20140409
  Transmission Date: 20141212
  Serious: No
  Sender: FDA-Public Use
  Company Number: US-ASTRAZENECA-2013SE79745

PATIENT
  Age: 77 Year
  Sex: Male
  Weight: 104.3 kg

DRUGS (12)
  1. BRILINTA [Suspect]
     Indication: MYOCARDIAL INFARCTION
     Dosage: BID
     Route: 048
     Dates: start: 20131016
  2. BRILINTA [Suspect]
     Indication: ACUTE CORONARY SYNDROME
     Dosage: BID
     Route: 048
     Dates: start: 20131016
  3. BRILINTA [Suspect]
     Indication: THROMBOSIS PROPHYLAXIS
     Dosage: BID
     Route: 048
     Dates: start: 20131016
  4. OMEPRAZOLE [Suspect]
     Route: 048
  5. CARVEDILOL [Concomitant]
  6. QUINAPRIL [Concomitant]
  7. GABAPENTIN [Concomitant]
  8. ATORVASTATIN [Concomitant]
  9. SERTRALINE [Concomitant]
  10. GLIMEPIRIDE [Concomitant]
  11. MELOXICAM [Concomitant]
  12. AMLODIPINE [Concomitant]

REACTIONS (4)
  - Dyspnoea [Not Recovered/Not Resolved]
  - Haematuria [Not Recovered/Not Resolved]
  - Fatigue [Not Recovered/Not Resolved]
  - Nasopharyngitis [Not Recovered/Not Resolved]
